FAERS Safety Report 5812916-X (Version None)
Quarter: 2008Q3

REPORT INFORMATION
  Report Type: 
  Country: None (occurrence: None)
  Receive Date: 20080717
  Receipt Date: 20070710
  Transmission Date: 20090109
  Serious: No
  Sender: FDA-Public Use
  Company Number: A0662460A

PATIENT
  Age: 43 Year
  Sex: Female

DRUGS (1)
  1. NICORETTE [Suspect]
     Dates: start: 20070708, end: 20070708

REACTIONS (1)
  - MALAISE [None]
